FAERS Safety Report 15504200 (Version 1)
Quarter: 2018Q4

REPORT INFORMATION
  Report Type: Spontaneous
  Country: US (occurrence: US)
  Receive Date: 20181009
  Receipt Date: 20181009
  Transmission Date: 20190205
  Serious: Yes (Hospitalization)
  Sender: FDA-Public Use
  Company Number: None

PATIENT
  Age: 48 Year
  Sex: Male

DRUGS (2)
  1. MORPHINE SULFATE TAB [Concomitant]
  2. VOTRIENT [Suspect]
     Active Substance: PAZOPANIB HYDROCHLORIDE
     Indication: RENAL CANCER
     Route: 048
     Dates: start: 20180718

REACTIONS (3)
  - Product distribution issue [None]
  - Abdominal pain [None]
  - Product dose omission [None]

NARRATIVE: CASE EVENT DATE: 20181001
